FAERS Safety Report 22391211 (Version 1)
Quarter: 2023Q2

REPORT INFORMATION
  Report Type: Spontaneous
  Country: US (occurrence: US)
  Receive Date: 20230601
  Receipt Date: 20230601
  Transmission Date: 20230722
  Serious: Yes (Hospitalization)
  Sender: FDA-Public Use
  Company Number: US-CADILA HEALTHCARE LIMITED-US-ZYDUS-093653

PATIENT

DRUGS (2)
  1. NAPROXEN [Suspect]
     Active Substance: NAPROXEN
     Indication: Product used for unknown indication
     Dosage: 41.8 GRAM  (656 MG/KG; 63.7KG)
     Route: 065
  2. IBUPROFEN [Suspect]
     Active Substance: IBUPROFEN
     Indication: Product used for unknown indication
     Dosage: 2 GRAM
     Route: 065

REACTIONS (7)
  - Disorientation [Unknown]
  - Lactic acidosis [Unknown]
  - Agitation [Unknown]
  - Lethargy [Unknown]
  - Hypotension [Unknown]
  - Overdose [Unknown]
  - Intentional product misuse [Unknown]
